FAERS Safety Report 14313279 (Version 1)
Quarter: 2017Q4

REPORT INFORMATION
  Report Type: Spontaneous
  Country: US (occurrence: US)
  Receive Date: 20171220
  Receipt Date: 20171220
  Transmission Date: 20180321
  Serious: Yes (Other)
  Sender: FDA-Public Use
  Company Number: None

PATIENT

DRUGS (1)
  1. BUPIVICAINE SPINAL [Suspect]
     Active Substance: BUPIVACAINE

REACTIONS (2)
  - Product quality issue [None]
  - Drug effect decreased [None]
